FAERS Safety Report 6568512-2 (Version None)
Quarter: 2010Q1

REPORT INFORMATION
  Report Type: 
  Country: None (occurrence: None)
  Receive Date: 20100203
  Receipt Date: 20100126
  Transmission Date: 20100710
  Serious: Yes (Hospitalization)
  Sender: FDA-Public Use
  Company Number: JP-BRISTOL-MYERS SQUIBB COMPANY-14753537

PATIENT
  Age: 72 Year
  Sex: Male
  Weight: 60 kg

DRUGS (10)
  1. ERBITUX [Suspect]
     Indication: COLON CANCER
     Dosage: 650MG ON 15JUN09;400MG: 02DEC08-03JUN09;
     Route: 042
     Dates: start: 20081115, end: 20090603
  2. TOPOTECAN [Suspect]
     Indication: COLON CANCER
     Dosage: 120MG: 24DEC08-03JUN09;160 MG ON 25NOV08
     Route: 042
     Dates: start: 20081125, end: 20090603
  3. RESTAMIN [Concomitant]
     Indication: PREMEDICATION
     Dosage: 5 DF = 5 TABS
     Route: 048
     Dates: start: 20081115, end: 20090603
  4. DECADRON [Concomitant]
     Indication: PREMEDICATION
     Dosage: ADMINISTERED AT THE TIME OF TOPOTECIN
     Route: 042
     Dates: start: 20081115, end: 20090603
  5. NAUZELIN [Concomitant]
     Indication: ANTIEMETIC SUPPORTIVE CARE
     Dosage: 3 DF = 3 TABS
     Route: 048
     Dates: start: 20081125, end: 20090606
  6. ZOFRAN [Concomitant]
     Indication: ANTIEMETIC SUPPORTIVE CARE
     Dosage: 1 DF = 1 TABS
     Route: 048
     Dates: start: 20081125, end: 20090605
  7. KYTRIL [Concomitant]
     Indication: ANTIEMETIC SUPPORTIVE CARE
     Dosage: 1 DF = 1 AMPLE
     Route: 042
     Dates: start: 20081125, end: 20090603
  8. URSO 250 [Concomitant]
     Indication: CHOLESTASIS
     Dosage: 3 DF = 3 TABS URSO 100 MG
     Route: 048
     Dates: start: 20081125, end: 20090606
  9. MAGNESIUM OXIDE [Concomitant]
     Indication: CONSTIPATION
     Route: 048
     Dates: start: 20081125, end: 20090606
  10. SODIUM BICARBONATE [Concomitant]
     Indication: ACIDOSIS
     Route: 048
     Dates: start: 20081125, end: 20090606

REACTIONS (2)
  - ABDOMINAL DISTENSION [None]
  - DECREASED APPETITE [None]
